FAERS Safety Report 10726532 (Version 4)
Quarter: 2015Q2

REPORT INFORMATION
  Report Type: Spontaneous
  Country: US (occurrence: US)
  Receive Date: 20150121
  Receipt Date: 20150618
  Transmission Date: 20150821
  Serious: Yes (Hospitalization, Disabling, Other)
  Sender: FDA-Public Use
  Company Number: US-009507513-1106USA00666

PATIENT
  Sex: Female
  Weight: 65.31 kg

DRUGS (1)
  1. FOSAMAX [Suspect]
     Active Substance: ALENDRONATE SODIUM
     Indication: BONE DENSITY DECREASED
     Dosage: 70 MG, QW
     Route: 048
     Dates: start: 2002, end: 2005

REACTIONS (65)
  - Atrioventricular block first degree [Unknown]
  - Electrocardiogram Q wave abnormal [Unknown]
  - Chest pain [Unknown]
  - Dyspnoea exertional [Unknown]
  - Osteopenia [Unknown]
  - Sciatica [Unknown]
  - Abdominal pain [Unknown]
  - Abdominal pain upper [Unknown]
  - Bone disorder [Not Recovered/Not Resolved]
  - Skin cancer [Unknown]
  - Hypothyroidism [Unknown]
  - Wheezing [Unknown]
  - Swelling [Unknown]
  - Sleep apnoea syndrome [Unknown]
  - Pruritus [Unknown]
  - Dyspepsia [Unknown]
  - Intramedullary rod insertion [Unknown]
  - Spinal osteoarthritis [Unknown]
  - Periarthritis [Unknown]
  - Hypertension [Recovering/Resolving]
  - Epistaxis [Unknown]
  - Fatigue [Unknown]
  - Osteoporosis [Unknown]
  - Pain in extremity [Unknown]
  - Cardiac failure congestive [Unknown]
  - Gastrointestinal disorder [Unknown]
  - Arthritis [Unknown]
  - Depression [Unknown]
  - Skin ulcer [Unknown]
  - Abscess [Unknown]
  - Alopecia [Unknown]
  - Headache [Unknown]
  - Femur fracture [Not Recovered/Not Resolved]
  - Hysterectomy [Unknown]
  - Paranasal sinus discomfort [Unknown]
  - Increased tendency to bruise [Unknown]
  - Nervousness [Unknown]
  - Osteomyelitis [Unknown]
  - Fall [Unknown]
  - Loss of consciousness [Unknown]
  - Staphylococcal infection [Unknown]
  - Nerve compression [Unknown]
  - Hypercholesterolaemia [Unknown]
  - Respiratory tract congestion [Unknown]
  - Sinus disorder [Unknown]
  - Infection [Unknown]
  - Osteoarthritis [Unknown]
  - Cellulitis [Unknown]
  - Vertigo [Unknown]
  - Gastrooesophageal reflux disease [Unknown]
  - Asthma [Unknown]
  - Jaw operation [Unknown]
  - Appendicectomy [Unknown]
  - Asthenia [Unknown]
  - Sinus disorder [Unknown]
  - Eye operation [Unknown]
  - Jaw fracture [Unknown]
  - Hyponatraemia [Unknown]
  - Road traffic accident [Unknown]
  - Myofascial pain syndrome [Unknown]
  - Post-traumatic neck syndrome [Unknown]
  - Temperature intolerance [Unknown]
  - Local swelling [Unknown]
  - Cystopexy [Unknown]
  - Dizziness [Unknown]

NARRATIVE: CASE EVENT DATE: 2004
